FAERS Safety Report 4902536-3 (Version None)
Quarter: 2006Q1

REPORT INFORMATION
  Report Type: 
  Country: None (occurrence: None)
  Receive Date: 20060202
  Receipt Date: 20060130
  Transmission Date: 20060701
  Serious: Yes (Other)
  Sender: FDA-Public Use
  Company Number: HQWYE578530JAN06

PATIENT
  Age: 37 Year
  Sex: Female

DRUGS (5)
  1. SUPRAX [Suspect]
  2. CETIRIZINE HCL [Suspect]
     Indication: SWELLING
     Dosage: 1 DOSE DAILY
  3. ERYTHROMYCIN [Suspect]
  4. FLUCOXACILLIN (FLUCOXACILLIN, INJECTION) [Suspect]
  5. PENICILLIN V [Suspect]
     Indication: RASH

REACTIONS (4)
  - FEELING HOT AND COLD [None]
  - RASH [None]
  - SKIN EXFOLIATION [None]
  - SWELLING [None]
